FAERS Safety Report 17615907 (Version 1)
Quarter: 2020Q2

REPORT INFORMATION
  Report Type: Spontaneous
  Country: US (occurrence: US)
  Receive Date: 20200402
  Receipt Date: 20200402
  Transmission Date: 20200713
  Serious: No
  Sender: FDA-Public Use
  Company Number: US-UCBSA-2019030869

PATIENT
  Sex: Female
  Weight: 72.5 kg

DRUGS (1)
  1. NEUPRO [Suspect]
     Active Substance: ROTIGOTINE
     Indication: RESTLESS LEGS SYNDROME
     Dosage: 10 MILLIGRAM, ONCE DAILY (QD)
     Route: 062
     Dates: end: 2019

REACTIONS (4)
  - Application site burn [Recovered/Resolved]
  - Overdose [Unknown]
  - Blister [Recovered/Resolved]
  - Off label use [Unknown]
